FAERS Safety Report 14127863 (Version 1)
Quarter: 2017Q4

REPORT INFORMATION
  Report Type: Spontaneous
  Country: US (occurrence: US)
  Receive Date: 20171026
  Receipt Date: 20171026
  Transmission Date: 20180321
  Serious: No
  Sender: FDA-Public Use
  Company Number: US-PFIZER INC-2017460597

PATIENT
  Age: 66 Year
  Sex: Female
  Weight: 52 kg

DRUGS (1)
  1. CHANTIX [Suspect]
     Active Substance: VARENICLINE TARTRATE
     Indication: SMOKING CESSATION THERAPY
     Dosage: 2 DF, UNK
     Dates: start: 20170803

REACTIONS (4)
  - Insomnia [Recovering/Resolving]
  - Intentional product use issue [Unknown]
  - Abnormal dreams [Recovering/Resolving]
  - Nausea [Not Recovered/Not Resolved]

NARRATIVE: CASE EVENT DATE: 2017
